FAERS Safety Report 23238679 (Version 1)
Quarter: 2023Q4

REPORT INFORMATION
  Report Type: Spontaneous
  Country: IT (occurrence: IT)
  Receive Date: 20231129
  Receipt Date: 20231129
  Transmission Date: 20240109
  Serious: Yes (Death, Hospitalization)
  Sender: FDA-Public Use
  Company Number: IT-SA-2023SA366414

PATIENT
  Age: 90 Year

DRUGS (13)
  1. ENOXAPARIN SODIUM [Suspect]
     Active Substance: ENOXAPARIN SODIUM
     Indication: Anticoagulant therapy
     Dosage: 0.4 ML
     Dates: start: 20150112
  2. ENOXAPARIN SODIUM [Suspect]
     Active Substance: ENOXAPARIN SODIUM
     Dosage: 0.4 ML
     Dates: start: 20150113
  3. SODIUM CHLORIDE [Concomitant]
     Active Substance: SODIUM CHLORIDE
     Dosage: 500 ML
     Dates: start: 20150112
  4. SODIUM CHLORIDE [Concomitant]
     Active Substance: SODIUM CHLORIDE
     Dosage: 500 ML
     Dates: start: 20150112
  5. OXYGEN [Concomitant]
     Active Substance: OXYGEN
     Dosage: 1L/MIN
     Route: 045
     Dates: start: 20150112
  6. THEOPHYLLINE [Concomitant]
     Active Substance: THEOPHYLLINE
     Dosage: 1 ML
     Route: 042
     Dates: start: 20150112
  7. OMEPRAZOLE [Concomitant]
     Active Substance: OMEPRAZOLE
     Dosage: UNK
     Dates: start: 20150112
  8. AMINOPHYLLINE [Concomitant]
     Active Substance: AMINOPHYLLINE
     Dosage: UNK
     Dates: start: 20150112
  9. DUTASTERIDE [Concomitant]
     Active Substance: DUTASTERIDE
     Dosage: UNK
     Dates: start: 20150112
  10. DUTASTERIDE [Concomitant]
     Active Substance: DUTASTERIDE
     Dosage: UNK
     Dates: start: 20150113
  11. IRBESARTAN [Concomitant]
     Active Substance: IRBESARTAN
     Dosage: 300 MG HALF TABLET
     Dates: start: 20150113
  12. FUROSEMIDE [Concomitant]
     Active Substance: FUROSEMIDE
     Dosage: 25 MG
     Dates: start: 20150113
  13. SILODOSIN [Concomitant]
     Active Substance: SILODOSIN
     Dosage: UNK
     Dates: start: 20150113

REACTIONS (2)
  - Adverse event [Fatal]
  - Overdose [Fatal]

NARRATIVE: CASE EVENT DATE: 20150101
